FAERS Safety Report 9841915 (Version 1)
Quarter: 2014Q1

REPORT INFORMATION
  Report Type: Spontaneous
  Country: TW (occurrence: TW)
  Receive Date: 20140124
  Receipt Date: 20140124
  Transmission Date: 20141002
  Serious: Yes (Life-Threatening, Hospitalization)
  Sender: FDA-Public Use
  Company Number: TW-ACTAVIS-2014-00457

PATIENT
  Age: 64 Year
  Sex: Male

DRUGS (2)
  1. OXALIPLATIN (UNKNOWN) [Suspect]
     Indication: ADENOCARCINOMA OF COLON
     Dosage: 85 MG/M2, UNKNOWN
     Route: 042
  2. OXALIPLATIN (UNKNOWN) [Suspect]
     Indication: METASTASES TO LIVER

REACTIONS (1)
  - Hyperammonaemic encephalopathy [Not Recovered/Not Resolved]
